FAERS Safety Report 9201164 (Version 3)
Quarter: 2014Q2

REPORT INFORMATION
  Report Type: Spontaneous
  Country: CN (occurrence: CN)
  Receive Date: 20130401
  Receipt Date: 20140514
  Transmission Date: 20141212
  Serious: Yes (Other)
  Sender: FDA-Public Use
  Company Number: PHHY2013CN028238

PATIENT
  Age: 113 Year
  Sex: 0

DRUGS (1)
  1. SANDOSTATIN LAR [Suspect]
     Indication: NEUROENDOCRINE TUMOUR
     Dosage: 20 MG, ONCE IN A MONTH
     Dates: start: 20130321, end: 20130321

REACTIONS (1)
  - Hepatic steatosis [Unknown]
